FAERS Safety Report 21609776 (Version 2)
Quarter: 2022Q4

REPORT INFORMATION
  Report Type: Other
  Country: US (occurrence: US)
  Receive Date: 20221117
  Receipt Date: 20221206
  Transmission Date: 20230112
  Serious: Yes (Hospitalization, Other)
  Sender: FDA-Public Use
  Company Number: US-Covis Pharma GmbH-2022COV22339

PATIENT
  Age: 26 Year
  Sex: Female
  Weight: 74.456 kg

DRUGS (3)
  1. MAKENA [Suspect]
     Active Substance: HYDROXYPROGESTERONE CAPROATE
     Indication: Premature delivery
     Route: 058
     Dates: start: 20220526, end: 20221006
  2. ASPIRIN [Concomitant]
     Active Substance: ASPIRIN
     Indication: Pregnancy
     Dates: start: 20220425, end: 20221012
  3. VITAMINS [Concomitant]
     Active Substance: VITAMINS
     Indication: Pregnancy
     Dates: start: 20220425, end: 20221012

REACTIONS (2)
  - Premature delivery [Recovered/Resolved]
  - Vaginal discharge [Recovered/Resolved]

NARRATIVE: CASE EVENT DATE: 20220927
